FAERS Safety Report 7337125-7 (Version None)
Quarter: 2011Q1

REPORT INFORMATION
  Report Type: 
  Country: None (occurrence: None)
  Receive Date: 20110224
  Receipt Date: 20110214
  Transmission Date: 20110831
  Serious: Yes (Hospitalization)
  Sender: FDA-Public Use
  Company Number: 023063

PATIENT
  Sex: Female
  Weight: 92 kg

DRUGS (22)
  1. DIAZEPAM [Concomitant]
  2. MOGADON [Concomitant]
  3. PROMETHAZINE [Concomitant]
  4. OXYCONTIN [Concomitant]
  5. IMIGRAN /01044801/ [Concomitant]
  6. DOXEPIN [Concomitant]
  7. METFORMIN [Concomitant]
  8. METHOTREXATE [Concomitant]
  9. MELOXICAM [Concomitant]
  10. LIPITOR [Concomitant]
  11. POLY VISC (ALL OTHER THERAPEUTIC PRODUCTS) [Concomitant]
  12. MAXOLON [Concomitant]
  13. CODALGIN /00116401/ [Concomitant]
  14. CERTOLIZUMAB PEGOL (CERTOLIZUMAB PEGOL) [Suspect]
     Indication: RHEUMATOID ARTHRITIS
     Dosage: (400 MG 1X/2 WEEKS SUBCUTANEOUS) ; (200 MG 1X/2 WEEKS SUBCUTANEOUS)
     Route: 058
     Dates: start: 20050929, end: 20081120
  15. CERTOLIZUMAB PEGOL (CERTOLIZUMAB PEGOL) [Suspect]
     Indication: RHEUMATOID ARTHRITIS
     Dosage: (400 MG 1X/2 WEEKS SUBCUTANEOUS) ; (200 MG 1X/2 WEEKS SUBCUTANEOUS)
     Route: 058
     Dates: start: 20081204, end: 20100909
  16. FOLIC ACID [Concomitant]
  17. WARFARIN SODIUM [Concomitant]
  18. DIAMICRON [Concomitant]
  19. FUROSEMIDE [Concomitant]
  20. POLY GEL (ALL OTHER THERAPEUTIC PRODUCTS) [Concomitant]
  21. ACETAMINOPHEN [Concomitant]
  22. SOTALOL HCL [Concomitant]

REACTIONS (7)
  - LOWER RESPIRATORY TRACT INFECTION [None]
  - HYPOTENSION [None]
  - HAEMODYNAMIC INSTABILITY [None]
  - PULMONARY OEDEMA [None]
  - PYREXIA [None]
  - CHEST DISCOMFORT [None]
  - LUNG CONSOLIDATION [None]
